FAERS Safety Report 25962724 (Version 1)
Quarter: 2025Q4

REPORT INFORMATION
  Report Type: Spontaneous
  Country: CN (occurrence: CN)
  Receive Date: 20251027
  Receipt Date: 20251027
  Transmission Date: 20260117
  Serious: Yes (Hospitalization)
  Sender: NOVARTIS
  Company Number: CN-002147023-NVSC2025CN161459

PATIENT
  Age: 71 Year
  Sex: Male
  Weight: 70 kg

DRUGS (1)
  1. SACUBITRIL\VALSARTAN [Suspect]
     Active Substance: SACUBITRIL\VALSARTAN
     Indication: Hypertension
     Dosage: 100.000 MG, QD
     Route: 048
     Dates: start: 20250925, end: 20250927

REACTIONS (4)
  - Hypotension [Recovering/Resolving]
  - Arteriosclerosis coronary artery [Unknown]
  - Dizziness [Recovering/Resolving]
  - Amaurosis [Unknown]

NARRATIVE: CASE EVENT DATE: 20250928
